FAERS Safety Report 8999975 (Version 1)
Quarter: 2013Q1

REPORT INFORMATION
  Report Type: Spontaneous
  Country: IN (occurrence: IN)
  Receive Date: 20130102
  Receipt Date: 20130102
  Transmission Date: 20140127
  Serious: Yes (Other)
  Sender: FDA-Public Use
  Company Number: IN-ASTELLAS-2012JP012216

PATIENT
  Age: 16 Year
  Sex: Female

DRUGS (4)
  1. TACROLIMUS [Suspect]
     Indication: IMMUNOSUPPRESSION
     Route: 065
  2. TACROLIMUS [Suspect]
     Route: 065
  3. MYCOPHENOLATE MOFETIL [Suspect]
     Indication: IMMUNOSUPPRESSION
     Route: 065
  4. PREDNISOLONE [Suspect]
     Indication: IMMUNOSUPPRESSION
     Route: 065

REACTIONS (1)
  - Intracranial pressure increased [Unknown]
